FAERS Safety Report 8163677-3 (Version None)
Quarter: 2012Q1

REPORT INFORMATION
  Report Type: 
  Country: None (occurrence: None)
  Receive Date: 20120224
  Receipt Date: 20120222
  Transmission Date: 20120608
  Serious: Yes (Other)
  Sender: FDA-Public Use
  Company Number: US-JNJFOC-2005131096

PATIENT
  Sex: Female
  Weight: 58.1 kg

DRUGS (4)
  1. TRAMADOL HCL [Suspect]
     Indication: SUICIDE ATTEMPT
     Dosage: DAILY DOSE TEXT: 4 TABLETS ONE TIME
     Route: 048
     Dates: start: 20050920, end: 20050920
  2. BENADRYL [Suspect]
     Route: 048
  3. BENADRYL [Suspect]
     Indication: SUICIDE ATTEMPT
     Dosage: DAILY DOSE TEXT: 11 ULTRATABS ONE TIME
     Route: 048
     Dates: start: 20050920, end: 20050920
  4. TYLENOL PM [Suspect]
     Indication: SUICIDE ATTEMPT
     Dosage: DAILY DOSE TEXT: 1 TABLET ONE TIME
     Route: 048
     Dates: start: 20050920, end: 20050920

REACTIONS (7)
  - HYPERTENSION [None]
  - INTENTIONAL OVERDOSE [None]
  - MEDICATION ERROR [None]
  - DEPRESSED LEVEL OF CONSCIOUSNESS [None]
  - SUICIDE ATTEMPT [None]
  - SWELLING FACE [None]
  - NAUSEA [None]
